FAERS Safety Report 8204450-7 (Version None)
Quarter: 2012Q1

REPORT INFORMATION
  Report Type: 
  Country: None (occurrence: None)
  Receive Date: 20120313
  Receipt Date: 20120301
  Transmission Date: 20120608
  Serious: Yes (Hospitalization)
  Sender: FDA-Public Use
  Company Number: DE-JNJFOC-20110901171

PATIENT
  Sex: Female
  Weight: 46 kg

DRUGS (7)
  1. USTEKINUMAB [Suspect]
     Indication: PSORIASIS
     Route: 058
     Dates: start: 20100324, end: 20101101
  2. AMITRIPTYLINE HCL [Concomitant]
     Route: 048
  3. FLUOXETINE HCL [Concomitant]
     Route: 048
  4. PANTOPRAZOLE [Concomitant]
     Route: 048
  5. SIMVASTATIN [Concomitant]
     Route: 048
  6. CALCIUM [Concomitant]
     Route: 048
  7. DICLOFENAC SODIUM [Concomitant]
     Route: 048

REACTIONS (2)
  - RENAL IMPAIRMENT [None]
  - PSORIASIS [None]
